FAERS Safety Report 7902200-2 (Version None)
Quarter: 2011Q4

REPORT INFORMATION
  Report Type: 
  Country: None (occurrence: None)
  Receive Date: 20111108
  Receipt Date: 20111103
  Transmission Date: 20120403
  Serious: Yes (Other)
  Sender: FDA-Public Use
  Company Number: US-VERTEX PHARMACEUTICALS INC.-AE-2011-003049

PATIENT
  Sex: Male
  Weight: 48.578 kg

DRUGS (4)
  1. PEGASYS [Concomitant]
     Indication: HEPATITIS C
     Route: 058
     Dates: start: 20110902
  2. RIBASPHERE [Concomitant]
     Indication: HEPATITIS C
     Route: 048
     Dates: start: 20110902
  3. RIBASPHERE [Concomitant]
     Route: 048
     Dates: end: 20111031
  4. INCIVEK [Suspect]
     Indication: HEPATITIS C
     Route: 048
     Dates: start: 20110902

REACTIONS (7)
  - AMNESIA [None]
  - MEMORY IMPAIRMENT [None]
  - ANAEMIA [None]
  - GRAND MAL CONVULSION [None]
  - PRURITUS [None]
  - RENAL FAILURE ACUTE [None]
  - RASH ERYTHEMATOUS [None]
